FAERS Safety Report 20064452 (Version 4)
Quarter: 2022Q1

REPORT INFORMATION
  Report Type: Spontaneous
  Country: DE (occurrence: DE)
  Receive Date: 20211112
  Receipt Date: 20220125
  Transmission Date: 20220423
  Serious: Yes (Other)
  Sender: FDA-Public Use
  Company Number: DE-BRISTOL-MYERS SQUIBB COMPANY-BMS-2021-080397

PATIENT
  Age: 53 Year
  Sex: Female

DRUGS (16)
  1. IBANDRONATE SODIUM [Suspect]
     Active Substance: IBANDRONATE SODIUM
     Indication: Osteoporosis
     Dosage: 3 MILLIGRAM, Q3MONTHS
     Route: 042
     Dates: start: 2016
  2. SOFOSBUVIR [Suspect]
     Active Substance: SOFOSBUVIR
     Indication: Hepatitis C
     Dosage: UNK
     Route: 065
     Dates: start: 201702
  3. PIBRENTASVIR [Suspect]
     Active Substance: PIBRENTASVIR
     Indication: Hepatitis C
     Dosage: UNK
     Route: 065
     Dates: start: 201702
  4. DACLATASVIR DIHYDROCHLORIDE [Suspect]
     Active Substance: DACLATASVIR DIHYDROCHLORIDE
     Indication: Hepatitis C
     Dosage: UNK
     Route: 065
  5. DESCOVY [Suspect]
     Active Substance: EMTRICITABINE\TENOFOVIR ALAFENAMIDE FUMARATE
     Indication: HIV infection
     Dosage: UNK
     Route: 065
     Dates: start: 201605
  6. SIMEPREVIR [Suspect]
     Active Substance: SIMEPREVIR
     Indication: Hepatitis C
     Dosage: UNK
     Route: 065
  7. TRUVADA [Suspect]
     Active Substance: EMTRICITABINE\TENOFOVIR DISOPROXIL FUMARATE
     Indication: HIV infection
     Dosage: UNK
     Route: 065
     Dates: start: 201501
  8. DOLUTEGRAVIR [Suspect]
     Active Substance: DOLUTEGRAVIR
     Indication: HIV infection
     Dosage: UNK
     Route: 065
     Dates: start: 201501
  9. OMBITASVIR [Suspect]
     Active Substance: OMBITASVIR
     Indication: Hepatitis C
     Dosage: UNK
     Route: 065
  10. ELBASVIR\GRAZOPREVIR [Suspect]
     Active Substance: ELBASVIR\GRAZOPREVIR
     Indication: Hepatitis C
     Dosage: UNK
     Route: 065
     Dates: start: 201702
  11. HARVONI [Suspect]
     Active Substance: LEDIPASVIR\SOFOSBUVIR
     Indication: Hepatitis C
     Dosage: UNK
     Route: 065
  12. LEDIPASVIR [Suspect]
     Active Substance: LEDIPASVIR
     Indication: Hepatitis C
     Dosage: UNK
     Route: 065
  13. DOLUTEGRAVIR SODIUM\LAMIVUDINE [Suspect]
     Active Substance: DOLUTEGRAVIR SODIUM\LAMIVUDINE
     Indication: HIV infection
     Dosage: UNK
     Route: 065
  14. EMTRICITABINE\TENOFOVIR DISOPROXIL FUMARATE [Suspect]
     Active Substance: EMTRICITABINE\TENOFOVIR DISOPROXIL FUMARATE
     Indication: HIV infection
     Dosage: UNK
     Dates: start: 201501
  15. EMTRICITABINE\TENOFOVIR [Suspect]
     Active Substance: EMTRICITABINE\TENOFOVIR
     Indication: HIV infection
     Dosage: UNK
     Dates: start: 201605
  16. LEDIPASVIR\SOFOSBUVIR [Suspect]
     Active Substance: LEDIPASVIR\SOFOSBUVIR
     Indication: Hepatitis C
     Dosage: UNK

REACTIONS (5)
  - Hepatitis C [Recovered/Resolved]
  - Foot fracture [Unknown]
  - Drug resistance [Unknown]
  - Osteoporosis [Unknown]
  - Fibrosis [Unknown]

NARRATIVE: CASE EVENT DATE: 20190801
